FAERS Safety Report 4438539-5 (Version None)
Quarter: 2004Q3

REPORT INFORMATION
  Report Type: 
  Country: None (occurrence: None)
  Receive Date: 20040726
  Receipt Date: 20040517
  Transmission Date: 20050211
  Serious: Yes (Other)
  Sender: FDA-Public Use
  Company Number: USA040567704

PATIENT
  Age: 84 Year
  Sex: Female

DRUGS (10)
  1. EVISTA [Suspect]
     Indication: OSTEOPOROSIS
     Dosage: 60 MG
  2. FORTEO [Suspect]
     Indication: OSTEOPOROSIS
     Dosage: 20 UG/1 IN THE MORNING
     Dates: start: 20040428
  3. CALCIUM [Concomitant]
  4. INDERAL [Concomitant]
  5. MIACALCIN [Concomitant]
  6. HYDROCHLOROTHIAZIDE [Concomitant]
  7. ASPIRIN [Concomitant]
  8. VITAMIN C [Concomitant]
  9. POTASSIUM [Concomitant]
  10. TYLENOL [Concomitant]

REACTIONS (11)
  - ARTHRITIS [None]
  - BACK DISORDER [None]
  - BODY HEIGHT DECREASED [None]
  - COMPRESSION FRACTURE [None]
  - FLUSHING [None]
  - GASTRIC DISORDER [None]
  - HERNIA [None]
  - NERVOUSNESS [None]
  - SPINAL COMPRESSION FRACTURE [None]
  - TREMOR [None]
  - WEIGHT INCREASED [None]
